FAERS Safety Report 9441929 (Version 2)
Quarter: 2014Q2

REPORT INFORMATION
  Report Type: Spontaneous
  Country: FR (occurrence: FR)
  Receive Date: 20130806
  Receipt Date: 20140512
  Transmission Date: 20141212
  Serious: Yes (Other)
  Sender: FDA-Public Use
  Company Number: FR-009507513-1307FRA015591

PATIENT
  Age: 63 Year
  Sex: Female

DRUGS (2)
  1. EZETROL [Suspect]
     Dosage: 10 MG, QD
     Route: 048
     Dates: start: 201303, end: 20130524
  2. IBUPROFEN [Suspect]
     Indication: EAR, NOSE AND THROAT EXAMINATION ABNORMAL
     Dosage: UNK
     Route: 048
     Dates: start: 201305

REACTIONS (2)
  - Jaundice [Recovered/Resolved]
  - Hepatitis [Recovered/Resolved]
